FAERS Safety Report 23159455 (Version 1)
Quarter: 2023Q4

REPORT INFORMATION
  Report Type: Spontaneous
  Country: US (occurrence: US)
  Receive Date: 20231108
  Receipt Date: 20231108
  Transmission Date: 20240110
  Serious: Yes (Other)
  Sender: FDA-Public Use
  Company Number: US-BAYER-2023A155652

PATIENT
  Age: 84 Year
  Sex: Female

DRUGS (1)
  1. CLIMARA PRO [Suspect]
     Active Substance: ESTRADIOL\LEVONORGESTREL
     Indication: Menopause
     Route: 062

REACTIONS (4)
  - Transient ischaemic attack [Recovered/Resolved]
  - Product prescribing issue [None]
  - Wrong technique in product usage process [None]
  - Aphasia [Recovered/Resolved]

NARRATIVE: CASE EVENT DATE: 20230501
